FAERS Safety Report 6450003-0 (Version None)
Quarter: 2009Q4

REPORT INFORMATION
  Report Type: 
  Country: None (occurrence: None)
  Receive Date: 20091123
  Receipt Date: 20091116
  Transmission Date: 20100525
  Serious: Yes (Death)
  Sender: FDA-Public Use
  Company Number: US-JNJFOC-20090803483

PATIENT
  Sex: Female
  Weight: 51.26 kg

DRUGS (9)
  1. FENTANYL CITRATE [Suspect]
     Indication: PAIN
     Route: 062
  2. MEPERIDINE HCL [Concomitant]
  3. TRAZODONE HCL [Concomitant]
  4. CITALOPRAM [Concomitant]
  5. DIAZEPAM [Concomitant]
  6. NORDIAZEPAM [Concomitant]
  7. CAFFEINE [Concomitant]
  8. NICOTINE [Concomitant]
  9. LEXAPRO [Concomitant]
     Route: 048

REACTIONS (3)
  - CONTUSION [None]
  - DRUG TOXICITY [None]
  - PULMONARY CONGESTION [None]
